FAERS Safety Report 17788562 (Version 1)
Quarter: 2020Q2

REPORT INFORMATION
  Report Type: Spontaneous
  Country: ES (occurrence: ES)
  Receive Date: 20200514
  Receipt Date: 20200514
  Transmission Date: 20200714
  Serious: Yes (Other)
  Sender: FDA-Public Use
  Company Number: ES-MYLANLABS-2020M1046609

PATIENT
  Age: 47 Year
  Sex: Female

DRUGS (8)
  1. HIDROXICLOROQUINA                  /00072601/ [Suspect]
     Active Substance: HYDROXYCHLOROQUINE
     Indication: PNEUMONIA
  2. TOCILIZUMAB. [Suspect]
     Active Substance: TOCILIZUMAB
     Indication: CORONAVIRUS INFECTION
  3. AZITHROMYCIN ANHYDROUS. [Suspect]
     Active Substance: AZITHROMYCIN ANHYDROUS
     Indication: PNEUMONIA
     Dosage: 500 MG DIA
     Route: 048
     Dates: start: 20200328, end: 20200403
  4. DEXKETOPROFENO                     /01363801/ [Suspect]
     Active Substance: DEXKETOPROFEN
     Indication: PRODUCT USED FOR UNKNOWN INDICATION
     Dosage: 25 MG CADA 8 HORAS
     Route: 042
     Dates: start: 20200406, end: 20200408
  5. TOCILIZUMAB. [Suspect]
     Active Substance: TOCILIZUMAB
     Indication: SEVERE ACUTE RESPIRATORY SYNDROME
     Dosage: 600 MG
     Route: 042
     Dates: start: 20200329, end: 20200329
  6. HIDROXICLOROQUINA                  /00072601/ [Suspect]
     Active Substance: HYDROXYCHLOROQUINE
     Indication: CORONAVIRUS INFECTION
     Dosage: 400 MG DIA
     Route: 048
     Dates: start: 20200328, end: 20200406
  7. AZITHROMYCIN ANHYDROUS. [Suspect]
     Active Substance: AZITHROMYCIN ANHYDROUS
     Indication: CORONAVIRUS INFECTION
  8. PARACETAMOL [Suspect]
     Active Substance: ACETAMINOPHEN
     Indication: PRODUCT USED FOR UNKNOWN INDICATION
     Dosage: 1GR CADA 8H
     Route: 048
     Dates: start: 20200331, end: 20200408

REACTIONS (2)
  - Condition aggravated [Unknown]
  - Hepatitis [Unknown]

NARRATIVE: CASE EVENT DATE: 20200407
